FAERS Safety Report 5282293-4 (Version None)
Quarter: 2007Q1

REPORT INFORMATION
  Report Type: 
  Country: None (occurrence: None)
  Receive Date: 20070331
  Receipt Date: 20070320
  Transmission Date: 20070707
  Serious: Yes (Death)
  Sender: FDA-Public Use
  Company Number: FR-PFIZER INC-2007023688

PATIENT
  Age: 57 Year
  Sex: Male

DRUGS (7)
  1. LYRICA [Suspect]
  2. TROSPIUM CHLORIDE [Suspect]
  3. HYDROXYZINE HYDROCHLORIDE [Suspect]
  4. BACLOFEN [Suspect]
  5. TRAMADOL HCL [Suspect]
  6. CLOMIPRAMINE HCL [Suspect]
  7. ALL OTHER THERAPEUTIC PRODUCTS [Concomitant]

REACTIONS (1)
  - PULMONARY EMBOLISM [None]
